FAERS Safety Report 5317824-9 (Version None)
Quarter: 2007Q2

REPORT INFORMATION
  Report Type: 
  Country: None (occurrence: None)
  Receive Date: 20070502
  Receipt Date: 20070502
  Transmission Date: 20071010
  Serious: No
  Sender: FDA-Public Use
  Company Number: None

PATIENT
  Age: 67 Year
  Sex: Male

DRUGS (1)
  1. MELPHALAN [Suspect]
     Indication: MULTIPLE MYELOMA
     Dosage: 354MG IV X 1
     Route: 042
     Dates: start: 20070409

REACTIONS (2)
  - DRUG TOXICITY [None]
  - SMALL INTESTINAL OBSTRUCTION [None]
